FAERS Safety Report 5017917-X (Version None)
Quarter: 2006Q2

REPORT INFORMATION
  Report Type: 
  Country: None (occurrence: None)
  Receive Date: 20060602
  Receipt Date: 20060602
  Transmission Date: 20061013
  Serious: Yes (Other)
  Sender: FDA-Public Use
  Company Number: None

PATIENT
  Age: 68 Year
  Sex: Female
  Weight: 57.6068 kg

DRUGS (2)
  1. GEMCITABINE [Suspect]
     Indication: PANCREATIC CARCINOMA
     Dosage: 1290 MG  DAYS 3 AND 10 IV
     Route: 042
     Dates: start: 20060227, end: 20060531
  2. IMATINIB MESYLATE [Suspect]
     Dosage: 400MG  DAYS 1-5 AND 8-12 PO
     Route: 048
     Dates: start: 20060227, end: 20060531

REACTIONS (1)
  - NEUTROPHIL COUNT DECREASED [None]
